FAERS Safety Report 17482540 (Version 1)
Quarter: 2020Q1

REPORT INFORMATION
  Report Type: Spontaneous
  Country: DE (occurrence: DE)
  Receive Date: 20200302
  Receipt Date: 20200302
  Transmission Date: 20200409
  Serious: Yes (Hospitalization)
  Sender: FDA-Public Use
  Company Number: DE-PFIZER INC-2020086217

PATIENT
  Age: 87 Year
  Sex: Female
  Weight: 74 kg

DRUGS (16)
  1. OXYCODON [Suspect]
     Active Substance: OXYCODONE
     Dosage: 5 MG, AS NEEDED
     Route: 048
  2. PRAMIPEXOL [PRAMIPEXOLE] [Suspect]
     Active Substance: PRAMIPEXOLE
     Dosage: 0.18 MG, 0-0-0-2
     Route: 048
  3. LEVOTHYROXINE SODIUM. [Concomitant]
     Active Substance: LEVOTHYROXINE SODIUM
     Dosage: 50 UG, 1X/DAY, 1-0-0-0
     Route: 048
  4. PREDNISOLON [PREDNISOLONE] [Concomitant]
     Active Substance: PREDNISOLONE
     Dosage: 10 MG, 1X/DAY (0.5-0-0-0)
     Route: 048
  5. DULOXETINE. [Interacting]
     Active Substance: DULOXETINE
     Dosage: 60 MG, 2X/DAY, 1-1-0-0
     Route: 048
  6. FENTANYL. [Suspect]
     Active Substance: FENTANYL
     Dosage: 75 UG/H, CHANGE EVERY 3 DAYS
     Route: 062
  7. COLECALCIFEROL [Concomitant]
     Active Substance: CHOLECALCIFEROL
     Dosage: 20000 IU, WEEKLY
     Route: 048
  8. PREGABALIN. [Suspect]
     Active Substance: PREGABALIN
     Dosage: 75 MG, 3X/DAY, 1-0-0-2
     Route: 048
  9. FLUTICASONE/SALMETEROL [Concomitant]
     Active Substance: FLUTICASONE PROPIONATE\SALMETEROL XINAFOATE
     Dosage: 250/50 UG, 2X/DAY (1-0-1-0)
     Route: 055
  10. CALCIUMACETAT-NEFRO [Concomitant]
     Dosage: 500 MG, 2X/DAY (1-0-1-0)
     Route: 048
  11. BENSERAZIDE/LEVODOPA [Suspect]
     Active Substance: BENSERAZIDE\LEVODOPA
     Dosage: 25/100 MG, 0-0-0-1
     Route: 048
  12. CARBIDOPA/LEVODOPA [Suspect]
     Active Substance: CARBIDOPA\LEVODOPA
     Dosage: 25/100 MG, AS NEEDED
     Route: 048
  13. TIOTROPIUM BROMIDE [Concomitant]
     Active Substance: TIOTROPIUM BROMIDE
     Dosage: 18 UG, 1X/DAY, 1-0-0-0
     Route: 055
  14. TORASEMID [Suspect]
     Active Substance: TORSEMIDE
     Dosage: 10 MG, 1X/DAY, 1-0-0-0
     Route: 048
  15. PANTOPRAZOL [PANTOPRAZOLE] [Concomitant]
     Active Substance: PANTOPRAZOLE
     Dosage: 40 MG, 1X/DAY, 1-0-0-0
     Route: 048
  16. ACETYLSALICYLSAEURE [Concomitant]
     Active Substance: ASPIRIN
     Dosage: 100 MG, 1X/DAY 0-1-0-0
     Route: 048

REACTIONS (6)
  - Labelled drug-drug interaction medication error [Unknown]
  - Product prescribing error [Unknown]
  - Medication error [Unknown]
  - Hypophagia [Unknown]
  - General physical health deterioration [Unknown]
  - Tremor [Unknown]

NARRATIVE: CASE EVENT DATE: 20190801
